FAERS Safety Report 4557177-7 (Version None)
Quarter: 2005Q1

REPORT INFORMATION
  Report Type: 
  Country: None (occurrence: None)
  Receive Date: 20050118
  Receipt Date: 20050106
  Transmission Date: 20050727
  Serious: Yes (Hospitalization)
  Sender: FDA-Public Use
  Company Number: 2005007039

PATIENT
  Age: 42 Year
  Sex: Female

DRUGS (2)
  1. TRANEXAMIC ACID (TRANEXAMIC ACID) [Suspect]
     Indication: MENORRHAGIA
     Dosage: 3 GRAMS DAILY IN DIVIDED DOSES, INTRAMUSCULAR
     Route: 030
  2. ORAL CONTRACEPTIVE NOS (ORAL CONTRACEPTIVE NOS) [Suspect]
     Indication: MENORRHAGIA
     Dosage: ONE PILL DAILY, ORAL
     Route: 048

REACTIONS (4)
  - ACUTE MYOCARDIAL INFARCTION [None]
  - ARTERIOGRAM CORONARY ABNORMAL [None]
  - ELECTROCARDIOGRAM Q WAVES [None]
  - ELECTROCARDIOGRAM T WAVE INVERSION [None]
